FAERS Safety Report 10181072 (Version 2)
Quarter: 2014Q4

REPORT INFORMATION
  Report Type: Spontaneous
  Country: US (occurrence: US)
  Receive Date: 20140519
  Receipt Date: 20141006
  Transmission Date: 20150528
  Serious: No
  Sender: FDA-Public Use
  Company Number: US-AMGEN INC.-USASP2014025531

PATIENT
  Age: 73 Year
  Sex: Female
  Weight: 92.06 kg

DRUGS (8)
  1. NEXIUM [Concomitant]
     Active Substance: ESOMEPRAZOLE MAGNESIUM
  2. ALBUTEROL                          /00139501/ [Concomitant]
     Active Substance: ALBUTEROL
  3. PROLIA [Suspect]
     Active Substance: DENOSUMAB
     Indication: OSTEOPOROSIS POSTMENOPAUSAL
     Dosage: 60 MG, Q6MO
     Route: 058
     Dates: start: 20120319
  4. PROLIA [Suspect]
     Active Substance: DENOSUMAB
     Route: 058
  5. FLUTICASONE [Concomitant]
     Active Substance: FLUTICASONE\FLUTICASONE PROPIONATE
  6. PROLIA [Suspect]
     Active Substance: DENOSUMAB
     Route: 058
  7. PROLIA [Suspect]
     Active Substance: DENOSUMAB
     Route: 058
  8. ALLEGRA [Concomitant]
     Active Substance: FEXOFENADINE HYDROCHLORIDE

REACTIONS (1)
  - Joint crepitation [Recovered/Resolved]

NARRATIVE: CASE EVENT DATE: 201310
